FAERS Safety Report 4567511-X (Version None)
Quarter: 2005Q1

REPORT INFORMATION
  Report Type: 
  Country: None (occurrence: None)
  Receive Date: 20050127
  Receipt Date: 20050119
  Transmission Date: 20050727
  Serious: Yes (Hospitalization)
  Sender: FDA-Public Use
  Company Number: 2005-01-1167

PATIENT
  Age: 50 Year
  Sex: Female

DRUGS (3)
  1. TEMODAL [Suspect]
     Dosage: 300MG-UNK ORAL
     Route: 048
     Dates: start: 20041221, end: 20041226
  2. TEMODAL [Suspect]
     Dosage: 300MG-UNK ORAL
     Route: 048
     Dates: start: 20041221
  3. TEMODAL [Suspect]
     Dosage: 300MG-UNK ORAL
     Route: 048
     Dates: start: 20050118

REACTIONS (3)
  - CHILLS [None]
  - MUSCLE RIGIDITY [None]
  - SCREAMING [None]
